FAERS Safety Report 10442216 (Version 1)
Quarter: 2014Q3

REPORT INFORMATION
  Report Type: Spontaneous
  Country: GB (occurrence: GB)
  Receive Date: 20140909
  Receipt Date: 20140909
  Transmission Date: 20150326
  Serious: Yes (Other)
  Sender: FDA-Public Use
  Company Number: PHHY2014GB109788

PATIENT
  Age: 24 Year
  Sex: Female
  Weight: 87 kg

DRUGS (12)
  1. CLARITHROMYCIN. [Concomitant]
     Active Substance: CLARITHROMYCIN
     Dates: start: 20140801
  2. CLENIL MODULITE [Concomitant]
     Active Substance: BECLOMETHASONE DIPROPIONATE
     Dates: start: 20140728
  3. DESOGESTREL [Concomitant]
     Active Substance: DESOGESTREL
     Dates: start: 20140728
  4. PENICILLIN V POTASSIUM. [Suspect]
     Active Substance: PENICILLIN V POTASSIUM
     Dates: start: 20140818
  5. ARIPIPRAZOLE [Concomitant]
     Active Substance: ARIPIPRAZOLE
     Dates: start: 20140728
  6. PARACETAMOL [Concomitant]
     Active Substance: ACETAMINOPHEN
     Dates: start: 20140801
  7. SALBUTAMOL [Concomitant]
     Active Substance: ALBUTEROL
     Dates: start: 20140728
  8. CITALOPRAM [Concomitant]
     Active Substance: CITALOPRAM HYDROBROMIDE
     Dates: start: 20140724
  9. CLONAZEPAM. [Concomitant]
     Active Substance: CLONAZEPAM
     Dates: start: 20140728
  10. LAMOTRIGINE. [Concomitant]
     Active Substance: LAMOTRIGINE
     Dates: start: 20140728
  11. PREDNISOLONE. [Concomitant]
     Active Substance: PREDNISOLONE
     Dates: start: 20140804
  12. ZOPICLONE [Concomitant]
     Active Substance: ZOPICLONE
     Dates: start: 20140724

REACTIONS (2)
  - Rash [Unknown]
  - Wheezing [Unknown]

NARRATIVE: CASE EVENT DATE: 20140818
